FAERS Safety Report 13721606 (Version 1)
Quarter: 2017Q3

REPORT INFORMATION
  Report Type: Spontaneous
  Country: US (occurrence: US)
  Receive Date: 20170706
  Receipt Date: 20170706
  Transmission Date: 20171127
  Serious: Yes (Death)
  Sender: FDA-Public Use
  Company Number: US-BEH-2017081805

PATIENT
  Age: 70 Year
  Sex: Female
  Weight: 68.27 kg

DRUGS (44)
  1. HIZENTRA [Suspect]
     Active Substance: HUMAN IMMUNOGLOBULIN G
     Indication: IMMUNODEFICIENCY COMMON VARIABLE
     Dosage: 15 G, QW
     Route: 058
     Dates: start: 20160829, end: 201706
  2. ACETAMINOPHEN. [Concomitant]
     Active Substance: ACETAMINOPHEN
  3. GLUCOSAMINE [Concomitant]
     Active Substance: GLUCOSAMINE
  4. MYLANTA [Concomitant]
     Active Substance: ALUMINUM HYDROXIDE\DIMETHICONE\MAGNESIUM HYDROXIDE
  5. DIPHENHYDRAMINE. [Concomitant]
     Active Substance: DIPHENHYDRAMINE
  6. SINGULAIR [Concomitant]
     Active Substance: MONTELUKAST SODIUM
  7. TEMAZEPAM. [Concomitant]
     Active Substance: TEMAZEPAM
  8. ALBUTEROL                          /00139501/ [Concomitant]
     Active Substance: ALBUTEROL
  9. LOTENSIN [Concomitant]
     Active Substance: BENAZEPRIL HYDROCHLORIDE
  10. PROAIR HFA [Concomitant]
     Active Substance: ALBUTEROL SULFATE
  11. VITAMIN B12 [Concomitant]
     Active Substance: CYANOCOBALAMIN
  12. NEURONTIN [Concomitant]
     Active Substance: GABAPENTIN
  13. ATENOLOL. [Concomitant]
     Active Substance: ATENOLOL
  14. MIRALAX [Concomitant]
     Active Substance: POLYETHYLENE GLYCOL 3350
  15. COLACE [Concomitant]
     Active Substance: DOCUSATE SODIUM
  16. HIZENTRA [Suspect]
     Active Substance: HUMAN IMMUNOGLOBULIN G
     Dosage: UNK
     Route: 058
  17. DIFLUCAN [Concomitant]
     Active Substance: FLUCONAZOLE
  18. LYSINE [Concomitant]
     Active Substance: LYSINE
  19. MAGNESIUM [Concomitant]
     Active Substance: MAGNESIUM
  20. LIDOCAINE. [Concomitant]
     Active Substance: LIDOCAINE
  21. VITAMIN B COMPLEX [Concomitant]
     Active Substance: CYANOCOBALAMIN\DEXPANTHENOL\NIACINAMIDE\PYRIDOXINE HYDROCHLORIDE\RIBOFLAVIN 5^-PHOSPHATE SODIUM\THIAMINE HYDROCHLORIDE\VITAMIN B COMPLEX
  22. CALCIUM + D3                       /00944201/ [Concomitant]
     Active Substance: CALCIUM CARBONATE\CHOLECALCIFEROL
  23. HIZENTRA [Suspect]
     Active Substance: HUMAN IMMUNOGLOBULIN G
     Dosage: UNK
     Route: 058
  24. HIZENTRA [Suspect]
     Active Substance: HUMAN IMMUNOGLOBULIN G
     Dosage: UNK
     Route: 058
  25. TRAMADOL. [Concomitant]
     Active Substance: TRAMADOL
  26. RESTASIS [Concomitant]
     Active Substance: CYCLOSPORINE
  27. KETOCONAZOLE. [Concomitant]
     Active Substance: KETOCONAZOLE
  28. SYMBICORT [Concomitant]
     Active Substance: BUDESONIDE\FORMOTEROL FUMARATE DIHYDRATE
  29. CLONIDINE. [Concomitant]
     Active Substance: CLONIDINE
  30. OXYGEN. [Concomitant]
     Active Substance: OXYGEN
  31. EPINEPHRINE. [Concomitant]
     Active Substance: EPINEPHRINE
  32. PREDNISONE. [Concomitant]
     Active Substance: PREDNISONE
  33. TAMOXIFEN [Concomitant]
     Active Substance: TAMOXIFEN
  34. VENLAFAXINE [Concomitant]
     Active Substance: VENLAFAXINE HYDROCHLORIDE
  35. FISH OIL [Concomitant]
     Active Substance: FISH OIL
  36. MACROBID [Concomitant]
     Active Substance: NITROFURANTOIN\NITROFURANTOIN MONOHYDRATE
  37. ONDANSETRON [Concomitant]
     Active Substance: ONDANSETRON
  38. SPIRIVA [Concomitant]
     Active Substance: TIOTROPIUM BROMIDE MONOHYDRATE
  39. BENZONATATE. [Concomitant]
     Active Substance: BENZONATATE
  40. TUSSIONEX                          /00004701/ [Concomitant]
     Active Substance: BROMHEXINE
  41. CEFPROZIL. [Concomitant]
     Active Substance: CEFPROZIL
  42. LASIX [Concomitant]
     Active Substance: FUROSEMIDE
  43. LIDODERM [Concomitant]
     Active Substance: LIDOCAINE
  44. ULORIC [Concomitant]
     Active Substance: FEBUXOSTAT

REACTIONS (1)
  - Death [Fatal]

NARRATIVE: CASE EVENT DATE: 201706
